FAERS Safety Report 23262705 (Version 1)
Quarter: 2023Q4

REPORT INFORMATION
  Report Type: Spontaneous
  Country: None (occurrence: PL)
  Receive Date: 20231205
  Receipt Date: 20231205
  Transmission Date: 20240109
  Serious: Yes (Life-Threatening, Hospitalization)
  Sender: FDA-Public Use
  Company Number: PL-B.Braun Medical Inc.-2149006

PATIENT
  Age: 80 Year
  Sex: Female

DRUGS (31)
  1. LIDOCAINE HYDROCHLORIDE [Suspect]
     Active Substance: DEXTROSE MONOHYDRATE\EPINEPHRINE\EPINEPHRINE BITARTRATE\LIDOCAINE\LIDOCAINE HYDROCHLORIDE\LIDOCAINE
     Indication: Anaesthesia procedure
  2. CLONIDINE [Suspect]
     Active Substance: CLONIDINE
  3. LERCANIDIPINE [Suspect]
     Active Substance: LERCANIDIPINE
  4. DEXTROSE [Suspect]
     Active Substance: DEXTROSE\DEXTROSE MONOHYDRATE
  5. UNSPECIFIED INGREDIENT [Suspect]
     Active Substance: UNSPECIFIED INGREDIENT
  6. NITRENDIPINE [Suspect]
     Active Substance: NITRENDIPINE
  7. CALCIUM CHLORIDE\MAGNESIUM CHLORIDE\POTASSIUM CHLORIDE\SODIUM ACETATE\ [Suspect]
     Active Substance: CALCIUM CHLORIDE\MAGNESIUM CHLORIDE\POTASSIUM CHLORIDE\SODIUM ACETATE\SODIUM CHLORIDE\SODIUM CITRATE
  8. HYDROCHLOROTHIAZIDE [Suspect]
     Active Substance: HYDROCHLOROTHIAZIDE
  9. NEBIVOLOL [Suspect]
     Active Substance: NEBIVOLOL
  10. UNSPECIFIED INGREDIENT [Suspect]
     Active Substance: UNSPECIFIED INGREDIENT
  11. CAPTOPRIL [Suspect]
     Active Substance: CAPTOPRIL
  12. SODIUM CHLORIDE [Suspect]
     Active Substance: SODIUM CHLORIDE
  13. UNSPECIFIED INGREDIENT [Suspect]
     Active Substance: UNSPECIFIED INGREDIENT
  14. POTASSIUM CHLORIDE [Suspect]
     Active Substance: POTASSIUM CHLORIDE
  15. AFLIBERCEPT [Suspect]
     Active Substance: AFLIBERCEPT
  16. ALLOPURINOL [Suspect]
     Active Substance: ALLOPURINOL
  17. PANTOPRAZOLE SODIUM [Suspect]
     Active Substance: PANTOPRAZOLE SODIUM
  18. MONONITRAT [Concomitant]
  19. SERTRAGEN [Concomitant]
  20. Tlip 20 [Concomitant]
  21. ANASTROZOLE [Concomitant]
     Active Substance: ANASTROZOLE
  22. ASPIRIN [Concomitant]
     Active Substance: ASPIRIN
  23. VIGAMOX [Concomitant]
     Active Substance: MOXIFLOXACIN HYDROCHLORIDE
  24. BETAHISTINE HYDROCHLORIDE [Concomitant]
     Active Substance: BETAHISTINE HYDROCHLORIDE
  25. CANDEPRES [Concomitant]
  26. Ipp 40 [Concomitant]
  27. DOXAZOSIN MESYLATE [Concomitant]
     Active Substance: DOXAZOSIN MESYLATE
  28. TROPICAMIDE [Concomitant]
     Active Substance: TROPICAMIDE
  29. Vinpoven forte [Concomitant]
  30. EUTHYROX [Concomitant]
     Active Substance: LEVOTHYROXINE SODIUM
  31. ALCAINE [Concomitant]
     Active Substance: PROPARACAINE HYDROCHLORIDE

REACTIONS (2)
  - Hyponatraemia [None]
  - Off label use [None]
